FAERS Safety Report 8444727-3 (Version None)
Quarter: 2012Q2

REPORT INFORMATION
  Report Type: 
  Country: None (occurrence: None)
  Receive Date: 20120323
  Receipt Date: 20110817
  Transmission Date: 20120825
  Serious: Yes (Other)
  Sender: FDA-Public Use
  Company Number: 163-21880-11082341

PATIENT
  Sex: Male

DRUGS (3)
  1. REVLIMID [Suspect]
     Indication: MULTIPLE MYELOMA
     Dosage: 25 MG, 1 IN 1 D, PO 25 MG, 1 IN 1 D, PO 15 MG, 1 IN 1 D, PO
     Route: 048
     Dates: start: 20110701, end: 20110101
  2. REVLIMID [Suspect]
     Indication: MULTIPLE MYELOMA
     Dosage: 25 MG, 1 IN 1 D, PO 25 MG, 1 IN 1 D, PO 15 MG, 1 IN 1 D, PO
     Route: 048
     Dates: start: 20101201, end: 20110101
  3. REVLIMID [Suspect]
     Indication: MULTIPLE MYELOMA
     Dosage: 25 MG, 1 IN 1 D, PO 25 MG, 1 IN 1 D, PO 15 MG, 1 IN 1 D, PO
     Route: 048
     Dates: start: 20110801, end: 20110101

REACTIONS (5)
  - CARDIAC FAILURE CONGESTIVE [None]
  - DIARRHOEA [None]
  - MYOCARDIAL INFARCTION [None]
  - OEDEMA PERIPHERAL [None]
  - FATIGUE [None]
